FAERS Safety Report 9486037 (Version 1)
Quarter: 2013Q3

REPORT INFORMATION
  Report Type: Spontaneous
  Country: US (occurrence: None)
  Receive Date: 20130826
  Receipt Date: 20130826
  Transmission Date: 20140515
  Serious: Yes (Other)
  Sender: FDA-Public Use
  Company Number: SYM-2013-04731

PATIENT
  Age: 86 Year
  Sex: Male
  Weight: 78.02 kg

DRUGS (3)
  1. NITROGLYCERIN [Suspect]
     Indication: CARDIAC DISORDER
     Route: 062
  2. LIPITOR (ATORVASTATIN CALCIUM) (TABLET) (ATORVASTATIN CALCIUM) [Concomitant]
  3. ATENOL (ATENOL) )(25 MILLIGRAM, TABLET) (ATENOL) [Concomitant]

REACTIONS (3)
  - Chest discomfort [None]
  - Drug ineffective [None]
  - Product quality issue [None]
